FAERS Safety Report 5825699-4 (Version None)
Quarter: 2008Q3

REPORT INFORMATION
  Report Type: 
  Country: None (occurrence: None)
  Receive Date: 20080729
  Receipt Date: 20080717
  Transmission Date: 20090109
  Serious: Yes (Hospitalization)
  Sender: FDA-Public Use
  Company Number: US-JNJFOC-20080704551

PATIENT
  Age: 27 Year
  Sex: Male

DRUGS (1)
  1. REMICADE [Suspect]
     Indication: COLITIS ULCERATIVE
     Dosage: THERAPY DURATION: ^A FEW YEARS^
     Route: 042

REACTIONS (3)
  - DIZZINESS [None]
  - INFUSION RELATED REACTION [None]
  - VOMITING [None]
